FAERS Safety Report 14178464 (Version 1)
Quarter: 2017Q4

REPORT INFORMATION
  Report Type: Spontaneous
  Country: US (occurrence: US)
  Receive Date: 20171111
  Receipt Date: 20171111
  Transmission Date: 20180321
  Serious: No
  Sender: FDA-Public Use
  Company Number: US-SHIRE-US201724884

PATIENT
  Age: 43 Year
  Sex: Male
  Weight: 94.5 kg

DRUGS (1)
  1. BUMINATE [Suspect]
     Active Substance: ALBUMIN HUMAN
     Indication: SECONDARY CEREBELLAR DEGENERATION
     Dosage: UNK
     Route: 042

REACTIONS (3)
  - Pruritus [Recovering/Resolving]
  - Urticaria [Recovering/Resolving]
  - Swollen tongue [Recovering/Resolving]
